FAERS Safety Report 9215625 (Version 3)
Quarter: 2013Q2

REPORT INFORMATION
  Report Type: Spontaneous
  Country: US (occurrence: US)
  Receive Date: 20130408
  Receipt Date: 20130613
  Transmission Date: 20140414
  Serious: No
  Sender: FDA-Public Use
  Company Number: US-009507513-1304USA002323

PATIENT
  Age: 46 Year
  Sex: Female

DRUGS (1)
  1. STERILE DILUENT [Suspect]
     Dosage: UNK
     Route: 030
     Dates: start: 20130401

REACTIONS (5)
  - Pain in extremity [Unknown]
  - Paraesthesia [Unknown]
  - Swelling [Unknown]
  - Discomfort [Unknown]
  - Drug administration error [Unknown]
